FAERS Safety Report 19811868 (Version 4)
Quarter: 2021Q4

REPORT INFORMATION
  Report Type: Report from Study
  Country: US (occurrence: US)
  Receive Date: 20210909
  Receipt Date: 20211018
  Transmission Date: 20220304
  Serious: Yes (Other)
  Sender: FDA-Public Use
  Company Number: US-IPSEN BIOPHARMACEUTICALS, INC.-2021-21754

PATIENT
  Age: 11 Year
  Sex: Male

DRUGS (4)
  1. INCRELEX [Suspect]
     Active Substance: MECASERMIN
     Indication: Cytogenetic abnormality
     Dosage: 0.04 MG/KG = 40 UG/KG TWICE DAILY
     Route: 058
     Dates: start: 20210715, end: 2021
  2. INCRELEX [Suspect]
     Active Substance: MECASERMIN
     Indication: Short stature
     Dosage: LOWER DOSE FOR TWO DAYS
     Route: 065
     Dates: start: 2021, end: 2021
  3. INCRELEX [Suspect]
     Active Substance: MECASERMIN
     Indication: Off label use
     Dosage: 0.04 MG/KG = 40 UG/KG, TWICE DAILY
     Route: 058
     Dates: start: 2021, end: 2021
  4. INCRELEX [Suspect]
     Active Substance: MECASERMIN
     Dosage: 30 UNITS
     Route: 058
     Dates: start: 2021

REACTIONS (5)
  - Shock hypoglycaemic [Recovered/Resolved]
  - Dizziness [Recovering/Resolving]
  - Headache [Recovering/Resolving]
  - Product dose omission issue [Unknown]
  - Off label use [Unknown]

NARRATIVE: CASE EVENT DATE: 20210101
